FAERS Safety Report 4735057-1 (Version None)
Quarter: 2005Q3

REPORT INFORMATION
  Report Type: 
  Country: None (occurrence: None)
  Receive Date: 20050804
  Receipt Date: 20050722
  Transmission Date: 20060218
  Serious: Yes (Hospitalization)
  Sender: FDA-Public Use
  Company Number: 2005-02645

PATIENT
  Age: 74 Year
  Sex: Male
  Weight: 98 kg

DRUGS (8)
  1. TRELSTAR [Suspect]
     Indication: PROSTATE CANCER
     Dosage: 11.25 MG, SINGLE, INTRAMUSCULAR
     Route: 030
     Dates: start: 20050427, end: 20050427
  2. PROBENECID TABLET [Concomitant]
  3. COUMADIN [Concomitant]
  4. DIOVANE (VALSARTAN) [Concomitant]
  5. TOPROL-XL [Concomitant]
  6. LOTREL [Concomitant]
  7. LANOXIN [Concomitant]
  8. TYLENOL [Concomitant]

REACTIONS (1)
  - CEREBROVASCULAR ACCIDENT [None]
